FAERS Safety Report 9771093 (Version 6)
Quarter: 2014Q1

REPORT INFORMATION
  Report Type: Spontaneous
  Country: JP (occurrence: JP)
  Receive Date: 20131218
  Receipt Date: 20140228
  Transmission Date: 20141002
  Serious: Yes (Disabling, Other)
  Sender: FDA-Public Use
  Company Number: JP-PFIZER INC-2013363054

PATIENT
  Age: 66 Year
  Sex: Female
  Weight: 63 kg

DRUGS (10)
  1. CELECOX [Suspect]
     Indication: PERIARTHRITIS
     Dosage: 100 MG, 2X/DAY (STRENGTH 100MG)
     Route: 048
     Dates: start: 20131128, end: 2013
  2. CELECOX [Suspect]
     Indication: GASTROOESOPHAGEAL REFLUX DISEASE
  3. TAGAMET [Suspect]
     Indication: PERIARTHRITIS
     Dosage: 200 MG, 2X/DAY
     Route: 048
     Dates: start: 20131128, end: 2013
  4. TAGAMET [Suspect]
     Indication: GASTROOESOPHAGEAL REFLUX DISEASE
  5. MYONAL [Suspect]
     Indication: PERIARTHRITIS
     Dosage: 50 MG, 2X/DAY
     Route: 048
     Dates: start: 20131128, end: 2013
  6. MYONAL [Suspect]
     Indication: GASTROOESOPHAGEAL REFLUX DISEASE
  7. MAINTATE [Concomitant]
     Indication: HYPERTENSION
     Dosage: UNK
     Dates: start: 201305
  8. ALLEGRA [Concomitant]
     Indication: PRURITUS
     Dosage: UNK
     Dates: start: 201306
  9. XYLOCAINE [Concomitant]
     Indication: ARTHRALGIA
     Dosage: UNK
     Dates: start: 20131128, end: 20131128
  10. RINDERON [Concomitant]
     Indication: ARTHRALGIA
     Dosage: UNK
     Dates: start: 20131128, end: 20131128

REACTIONS (7)
  - Retinal haemorrhage [Not Recovered/Not Resolved]
  - Blindness [Not Recovered/Not Resolved]
  - Gastrointestinal disorder [Recovered/Resolved]
  - Dyspnoea [Unknown]
  - Eructation [Unknown]
  - Hiccups [Unknown]
  - Incorrect dose administered [Unknown]
